FAERS Safety Report 23407037 (Version 2)
Quarter: 2024Q1

REPORT INFORMATION
  Report Type: Spontaneous
  Country: None (occurrence: DE)
  Receive Date: 20240116
  Receipt Date: 20240130
  Transmission Date: 20240410
  Serious: Yes (Other)
  Sender: FDA-Public Use
  Company Number: DE-Ascend Therapeutics US, LLC-2151360

PATIENT
  Age: 48 Year
  Sex: Female
  Weight: 86 kg

DRUGS (5)
  1. ESTROGEL [Suspect]
     Active Substance: ESTRADIOL
     Indication: Menstruation irregular
     Route: 065
     Dates: start: 202308
  2. ESTRADIOL [Suspect]
     Active Substance: ESTRADIOL
     Route: 065
     Dates: start: 202308
  3. ESTRADIOL [Suspect]
     Active Substance: ESTRADIOL
     Route: 065
  4. PROGESTERONE [Suspect]
     Active Substance: PROGESTERONE
     Route: 065
     Dates: start: 202308
  5. PROGESTERONE [Suspect]
     Active Substance: PROGESTERONE
     Route: 065
     Dates: start: 2023

REACTIONS (6)
  - Hyperhidrosis [Unknown]
  - Oropharyngeal pain [Unknown]
  - Therapeutic product effect decreased [Unknown]
  - Renal pain [Unknown]
  - Blood copper increased [Unknown]
  - Histamine intolerance [Unknown]
